FAERS Safety Report 5707194-6 (Version None)
Quarter: 2008Q2

REPORT INFORMATION
  Report Type: 
  Country: None (occurrence: None)
  Receive Date: 20080416
  Receipt Date: 20080410
  Transmission Date: 20081010
  Serious: Yes (Death, Other)
  Sender: FDA-Public Use
  Company Number: FR-MERCK-0804FRA00071

PATIENT
  Age: 18 Year
  Sex: Female

DRUGS (4)
  1. CANCIDAS [Suspect]
     Indication: ZYGOMYCOSIS
     Route: 042
  2. AMPHOTERICIN B AND CHOLESTEROL AND DISTEAROYLPHOSPHATIDYLGLYCEROL AND [Suspect]
     Indication: ZYGOMYCOSIS
     Route: 042
  3. POSACONAZOLE [Suspect]
     Indication: ZYGOMYCOSIS
     Route: 048
  4. DEFERASIROX [Suspect]
     Indication: ZYGOMYCOSIS
     Route: 048

REACTIONS (7)
  - DRUG INEFFECTIVE [None]
  - FUNGAL SEPSIS [None]
  - HAEMORRHAGE [None]
  - HEPATIC NECROSIS [None]
  - MULTI-ORGAN FAILURE [None]
  - NECROSIS [None]
  - ZYGOMYCOSIS [None]
